FAERS Safety Report 12832536 (Version 1)
Quarter: 2016Q4

REPORT INFORMATION
  Report Type: Spontaneous
  Country: US (occurrence: US)
  Receive Date: 20161010
  Receipt Date: 20161010
  Transmission Date: 20170207
  Serious: No
  Sender: FDA-Public Use
  Company Number: US-JAZZ-2016-US-013527

PATIENT
  Sex: Female

DRUGS (28)
  1. ABILIFY [Concomitant]
     Active Substance: ARIPIPRAZOLE
  2. BUSPAR [Concomitant]
     Active Substance: BUSPIRONE HYDROCHLORIDE
  3. DOXYCYCLINE HYCLATE DR [Concomitant]
     Active Substance: DOXYCYCLINE HYCLATE
  4. PHENTERMINE. [Concomitant]
     Active Substance: PHENTERMINE
  5. ADDERALL XR [Concomitant]
     Active Substance: AMPHETAMINE ASPARTATE\AMPHETAMINE SULFATE\DEXTROAMPHETAMINE SACCHARATE\DEXTROAMPHETAMINE SULFATE
  6. IBUPROFEN. [Concomitant]
     Active Substance: IBUPROFEN
  7. TIZANIDINE HCL [Concomitant]
     Active Substance: TIZANIDINE HYDROCHLORIDE
  8. XYREM [Suspect]
     Active Substance: SODIUM OXYBATE
     Dosage: 4.5 G, BID
     Route: 048
     Dates: start: 201412
  9. OXYCODONE HCL ER [Concomitant]
     Active Substance: OXYCODONE HYDROCHLORIDE
  10. NUVIGIL [Concomitant]
     Active Substance: ARMODAFINIL
  11. PRISTIQ EXTENDED-RELEASE [Concomitant]
     Active Substance: DESVENLAFAXINE SUCCINATE
  12. LUVOX CR [Suspect]
     Active Substance: FLUVOXAMINE MALEATE
     Indication: PRODUCT USED FOR UNKNOWN INDICATION
     Dosage: UNK
     Dates: start: 20130101, end: 20130601
  13. PRISTIQ EXTENDED-RELEASE [Concomitant]
     Active Substance: DESVENLAFAXINE SUCCINATE
  14. CYMBALTA [Concomitant]
     Active Substance: DULOXETINE HYDROCHLORIDE
  15. XYREM [Suspect]
     Active Substance: SODIUM OXYBATE
     Indication: NARCOLEPSY
     Dosage: 2.25 G, BID
     Route: 048
     Dates: start: 201110, end: 201111
  16. MULTIVITAMINS [Concomitant]
     Active Substance: VITAMINS
  17. LORAZEPAM. [Concomitant]
     Active Substance: LORAZEPAM
  18. CLOBETASOL [Concomitant]
     Active Substance: CLOBETASOL
  19. CONCERTA [Concomitant]
     Active Substance: METHYLPHENIDATE HYDROCHLORIDE
  20. ALPRAZOLAM. [Concomitant]
     Active Substance: ALPRAZOLAM
  21. HYDROCODONE/ACETAMINOPHEN [Concomitant]
     Active Substance: ACETAMINOPHEN\HYDROCODONE
  22. ADDERALL [Concomitant]
     Active Substance: AMPHETAMINE ASPARTATE\AMPHETAMINE SULFATE\DEXTROAMPHETAMINE SACCHARATE\DEXTROAMPHETAMINE SULFATE
  23. DIAZEPAM. [Concomitant]
     Active Substance: DIAZEPAM
  24. BENTYL [Concomitant]
     Active Substance: DICYCLOMINE HYDROCHLORIDE
  25. XYREM [Suspect]
     Active Substance: SODIUM OXYBATE
     Dosage: DOSE ADJSUTMENTS
     Route: 048
     Dates: start: 201111, end: 201412
  26. FLEXERIL [Concomitant]
     Active Substance: CYCLOBENZAPRINE HYDROCHLORIDE
  27. EFFEXOR [Concomitant]
     Active Substance: VENLAFAXINE HYDROCHLORIDE
  28. EXCEDRIN EXTRA STRENGTH [Concomitant]
     Active Substance: ACETAMINOPHEN\ASPIRIN\CAFFEINE

REACTIONS (4)
  - Wrong technique in product usage process [Unknown]
  - Back disorder [Recovering/Resolving]
  - Back pain [Recovering/Resolving]
  - Pre-existing condition improved [Unknown]
